FAERS Safety Report 7095962-0 (Version None)
Quarter: 2010Q4

REPORT INFORMATION
  Report Type: 
  Country: None (occurrence: None)
  Receive Date: 20101109
  Receipt Date: 20101109
  Transmission Date: 20110411
  Serious: Yes (Death)
  Sender: FDA-Public Use
  Company Number: None

PATIENT
  Age: 83 Year
  Sex: Male
  Weight: 68.0396 kg

DRUGS (1)
  1. AMIODARONE HCL [Suspect]
     Indication: ARRHYTHMIA
     Dosage: 1 TABLET TWICE DAILY PO
     Route: 048
     Dates: start: 20000101, end: 20101012

REACTIONS (2)
  - LUNG DISORDER [None]
  - PNEUMONIA [None]
